APPROVED DRUG PRODUCT: COZAAR
Active Ingredient: LOSARTAN POTASSIUM
Strength: 100MG
Dosage Form/Route: TABLET;ORAL
Application: N020386 | Product #003 | TE Code: AB
Applicant: ORGANON LLC A SUB OF ORGANON AND CO
Approved: Oct 13, 1998 | RLD: Yes | RS: Yes | Type: RX